FAERS Safety Report 19135282 (Version 1)
Quarter: 2021Q2

REPORT INFORMATION
  Report Type: Spontaneous
  Country: CN (occurrence: CN)
  Receive Date: 20210414
  Receipt Date: 20210414
  Transmission Date: 20210717
  Serious: Yes (Other)
  Sender: FDA-Public Use
  Company Number: CN-BAYER-2021-119348

PATIENT
  Age: 65 Year

DRUGS (1)
  1. AVELOX [Suspect]
     Active Substance: MOXIFLOXACIN HYDROCHLORIDE
     Indication: ANTI-INFECTIVE THERAPY

REACTIONS (6)
  - Haemorrhage [None]
  - Dyspnoea [None]
  - Heart rate increased [None]
  - Hypoaesthesia oral [None]
  - Chest discomfort [None]
  - Asthenia [None]
